FAERS Safety Report 14307290 (Version 2)
Quarter: 2017Q4

REPORT INFORMATION
  Report Type: Report from Study
  Country: AR (occurrence: AR)
  Receive Date: 20171220
  Receipt Date: 20171229
  Transmission Date: 20180321
  Serious: Yes (Hospitalization)
  Sender: FDA-Public Use
  Company Number: PHHY2017AR187933

PATIENT
  Sex: Male

DRUGS (1)
  1. DIOVAN [Suspect]
     Active Substance: VALSARTAN
     Indication: BLOOD PRESSURE INCREASED
     Dosage: 160 OT, QD (AT BREAKFAST), (10 OR 12 YEARS AGO TO MANY YEARS AGO)
     Route: 065

REACTIONS (4)
  - Blood pressure increased [Recovered/Resolved]
  - Fall [Recovered/Resolved]
  - Tremor [Unknown]
  - Cardiac disorder [Unknown]
